FAERS Safety Report 7064947-2 (Version None)
Quarter: 2010Q4

REPORT INFORMATION
  Report Type: 
  Country: None (occurrence: None)
  Receive Date: 20101027
  Receipt Date: 20101020
  Transmission Date: 20110411
  Serious: Yes (Hospitalization)
  Sender: FDA-Public Use
  Company Number: DE-ELI_LILLY_AND_COMPANY-DE201007002035

PATIENT
  Sex: Male
  Weight: 88 kg

DRUGS (19)
  1. PEMETREXED [Suspect]
     Indication: NON-SMALL CELL LUNG CANCER
     Dosage: 1000 MG, ONE IN THREE WEEKS
     Route: 042
     Dates: start: 20100528
  2. PEMETREXED [Suspect]
     Dosage: UNK, ONE IN THREE WEEKS
     Route: 042
     Dates: start: 20100713
  3. CISPLATIN [Suspect]
     Indication: NON-SMALL CELL LUNG CANCER
     Dosage: 150 MG, ONE IN THREE WEEKS
     Route: 042
     Dates: start: 20100528
  4. CISPLATIN [Suspect]
     Dosage: UNK, ONE IN THREE WEEKS
     Route: 042
     Dates: start: 20100713
  5. OTHER PHARMA COMPANY INV DRUG [Suspect]
     Indication: NON-SMALL CELL LUNG CANCER
     Dosage: 800 MG, TWO IN THREE WEEKS
     Route: 042
     Dates: start: 20100528
  6. OTHER PHARMA COMPANY INV DRUG [Suspect]
     Dosage: UNK, TWO IN THREE WEEKS
     Route: 042
     Dates: start: 20100713
  7. NEXIUM [Concomitant]
     Indication: PROPHYLAXIS
     Dosage: UNK, UNKNOWN
     Dates: start: 20100503
  8. FOLSAN [Concomitant]
     Indication: PROPHYLAXIS
     Dosage: UNK, UNKNOWN
     Dates: start: 20100520
  9. VITAMIN B-12 [Concomitant]
     Indication: PROPHYLAXIS
     Dates: start: 20100520
  10. ERYDERMEC [Concomitant]
     Indication: RASH
     Dosage: UNK, UNKNOWN
     Dates: start: 20100606, end: 20100617
  11. MAGNESIUM VERLA /00648601/ [Concomitant]
     Indication: PROPHYLAXIS
     Dosage: UNK, UNKNOWN
     Dates: start: 20100617
  12. NOVALGIN /06276704/ [Concomitant]
     Indication: PAIN
     Dosage: 500 MG, UNK
     Dates: start: 20100518, end: 20100527
  13. CLEXANE [Concomitant]
     Indication: PROPHYLAXIS
     Dosage: 0.5 ML, 2/D
     Route: 058
     Dates: start: 20100503
  14. CLEXANE [Concomitant]
     Dates: start: 20100701
  15. TRAMADOL HCL [Concomitant]
     Indication: PAIN
     Dosage: 100, UNK
     Dates: start: 20100518
  16. VOLTAREN [Concomitant]
     Indication: PAIN
     Dosage: UNK, UNK
     Dates: start: 20100518, end: 20100527
  17. TRANXILIUM [Concomitant]
     Indication: PREMEDICATION
     Dosage: 20 MG, UNK
     Dates: start: 20100504, end: 20100505
  18. OXAZEPAM [Concomitant]
     Indication: INSOMNIA
     Dosage: 10 MG, UNK
     Dates: start: 20100503
  19. OXYGESIC [Concomitant]
     Indication: PAIN
     Dosage: 10 MG, AS NEEDED
     Dates: start: 20100503, end: 20100503

REACTIONS (1)
  - PULMONARY EMBOLISM [None]
